FAERS Safety Report 10268091 (Version 1)
Quarter: 2014Q2

REPORT INFORMATION
  Report Type: Spontaneous
  Country: US (occurrence: US)
  Receive Date: 20140630
  Receipt Date: 20140630
  Transmission Date: 20141212
  Serious: Yes (Other)
  Sender: FDA-Public Use
  Company Number: US-ABBVIE-14P-163-1251872-00

PATIENT
  Age: 4 Year
  Sex: Female

DRUGS (1)
  1. LUPRON DEPOT-PED [Suspect]
     Indication: PRECOCIOUS PUBERTY
     Dosage: ONE DOSE
     Route: 030
     Dates: start: 20140608, end: 20140608

REACTIONS (1)
  - Cerebrovascular accident [Unknown]
